FAERS Safety Report 13955826 (Version 2)
Quarter: 2017Q4

REPORT INFORMATION
  Report Type: Report from Study
  Country: ES (occurrence: ES)
  Receive Date: 20170911
  Receipt Date: 20171009
  Transmission Date: 20180320
  Serious: Yes (Death, Hospitalization)
  Sender: FDA-Public Use
  Company Number: ES-BAYER-2015-476344

PATIENT
  Age: 60 Year
  Sex: Female
  Weight: 90 kg

DRUGS (12)
  1. FENTANYL. [Concomitant]
     Active Substance: FENTANYL
     Indication: PAIN
     Dosage: 8.3 ?G, QD
     Route: 058
     Dates: start: 20140113, end: 20151218
  2. RADIUM-223 DICHLORIDE [Suspect]
     Active Substance: RADIUM RA-223 DICHLORIDE
     Indication: BREAST CANCER STAGE IV
     Dosage: 50KBQ/KG
     Route: 042
     Dates: start: 20151105, end: 20151105
  3. OMEPRAZOL [Concomitant]
     Active Substance: OMEPRAZOLE
     Indication: PROPHYLAXIS
     Dosage: 40 MG, QD
     Route: 048
     Dates: start: 20140403, end: 20151218
  4. HYDROCHLOROTHIAZIDE. [Concomitant]
     Active Substance: HYDROCHLOROTHIAZIDE
     Indication: HYPERTENSION
     Dosage: 50 MG, QD
     Route: 048
     Dates: start: 20120107, end: 20151218
  5. CINITAPRIDE [Concomitant]
     Indication: HAEMORRHOIDS
     Dosage: 3 MG, QD
     Route: 048
     Dates: start: 201406, end: 20151218
  6. ADDITIONAL STUDY MEDICATION [Suspect]
     Active Substance: UNSPECIFIED INGREDIENT
     Indication: METASTASES TO BONE
     Dosage: 25MG
     Route: 048
     Dates: start: 20151016, end: 20151217
  7. RADIUM-223 DICHLORIDE [Suspect]
     Active Substance: RADIUM RA-223 DICHLORIDE
     Indication: METASTASES TO BONE
  8. ADDITIONAL STUDY MEDICATION [Suspect]
     Active Substance: UNSPECIFIED INGREDIENT
     Indication: BREAST CANCER STAGE IV
     Dosage: 50 MG, QD
     Route: 048
     Dates: start: 20151016, end: 20151217
  9. ADDITIONAL STUDY MEDICATION [Suspect]
     Active Substance: UNSPECIFIED INGREDIENT
     Indication: METASTASES TO BONE
  10. NOLOTIL (METAMIZOLE MAGNESIUM) [Concomitant]
     Active Substance: METAMIZOLE MAGNESIUM
     Indication: PAIN
     Dosage: UNK
     Route: 048
     Dates: start: 201501, end: 20151208
  11. ADDITIONAL STUDY MEDICATION [Suspect]
     Active Substance: UNSPECIFIED INGREDIENT
     Indication: BREAST CANCER STAGE IV
     Dosage: 10 MG, QD
     Route: 048
     Dates: start: 20151016, end: 20151112
  12. ENANTYUM [Concomitant]
     Active Substance: DEXKETOPROFEN TROMETAMOL
     Indication: PAIN
     Dosage: 80 MG, QD
     Route: 048
     Dates: start: 20130214, end: 20151218

REACTIONS (1)
  - Pulmonary embolism [Fatal]

NARRATIVE: CASE EVENT DATE: 20151116
